FAERS Safety Report 6160947-5 (Version None)
Quarter: 2009Q2

REPORT INFORMATION
  Report Type: 
  Country: None (occurrence: None)
  Receive Date: 20090420
  Receipt Date: 20090310
  Transmission Date: 20091009
  Serious: Yes (Other)
  Sender: FDA-Public Use
  Company Number: PHBS1999BE09509

PATIENT
  Sex: Male

DRUGS (2)
  1. DIOVAN [Suspect]
     Indication: ESSENTIAL HYPERTENSION
     Route: 048
     Dates: start: 19981101
  2. XENICAL [Concomitant]
     Route: 065

REACTIONS (3)
  - COOMBS DIRECT TEST POSITIVE [None]
  - DIABETES MELLITUS [None]
  - PERIARTHRITIS [None]
